FAERS Safety Report 17149844 (Version 3)
Quarter: 2021Q1

REPORT INFORMATION
  Report Type: Spontaneous
  Country: US (occurrence: US)
  Receive Date: 20191213
  Receipt Date: 20210205
  Transmission Date: 20210419
  Serious: Yes (Death, Other)
  Sender: FDA-Public Use
  Company Number: US-ASTRAZENECA-2019SF78637

PATIENT
  Age: 81 Year
  Sex: Male
  Weight: 79.4 kg

DRUGS (72)
  1. CIMETIDINE [Concomitant]
     Active Substance: CIMETIDINE
     Dates: start: 1990, end: 2020
  2. LEVOTHYROXINE. [Concomitant]
     Active Substance: LEVOTHYROXINE
  3. TRIMOX [Concomitant]
     Active Substance: AMOXICILLIN
  4. METOCLOPRAMIDE. [Concomitant]
     Active Substance: METOCLOPRAMIDE
  5. SALSALATE. [Concomitant]
     Active Substance: SALSALATE
  6. SULINDAC. [Concomitant]
     Active Substance: SULINDAC
  7. NEXIUM [Suspect]
     Active Substance: ESOMEPRAZOLE MAGNESIUM
     Indication: GASTROOESOPHAGEAL REFLUX DISEASE
     Route: 048
     Dates: start: 2002, end: 2019
  8. PRILOSEC [Suspect]
     Active Substance: OMEPRAZOLE MAGNESIUM
     Indication: GASTROOESOPHAGEAL REFLUX DISEASE
     Route: 048
     Dates: start: 1990, end: 2001
  9. PRILOSEC [Suspect]
     Active Substance: OMEPRAZOLE MAGNESIUM
     Indication: GASTROOESOPHAGEAL REFLUX DISEASE
     Dosage: GENERIC
     Route: 065
     Dates: start: 2009
  10. MIRTAZAPINE. [Concomitant]
     Active Substance: MIRTAZAPINE
     Indication: DEPRESSION
     Dates: start: 2018, end: 2020
  11. NITROQUICK [Concomitant]
     Active Substance: NITROGLYCERIN
  12. NEXIUM [Suspect]
     Active Substance: ESOMEPRAZOLE MAGNESIUM
     Indication: GASTROOESOPHAGEAL REFLUX DISEASE
     Dosage: GENERIC
     Route: 065
     Dates: start: 2016, end: 2017
  13. NEXIUM 24HR [Suspect]
     Active Substance: ESOMEPRAZOLE MAGNESIUM
     Indication: GASTROOESOPHAGEAL REFLUX DISEASE
     Route: 048
     Dates: start: 2002, end: 2019
  14. PREVACID [Suspect]
     Active Substance: LANSOPRAZOLE
     Indication: GASTROOESOPHAGEAL REFLUX DISEASE
     Route: 065
     Dates: start: 2003
  15. FUROSEMIDE. [Concomitant]
     Active Substance: FUROSEMIDE
     Indication: CARDIAC FAILURE CONGESTIVE
     Dates: start: 2018, end: 2020
  16. ROLAIDS [Concomitant]
     Active Substance: CALCIUM CARBONATE\MAGNESIUM HYDROXIDE
     Dates: start: 1975, end: 1990
  17. DESONIDE. [Concomitant]
     Active Substance: DESONIDE
  18. CARDURA [Concomitant]
     Active Substance: DOXAZOSIN MESYLATE
  19. RELAFEN [Concomitant]
     Active Substance: NABUMETONE
  20. FLOMAX [Concomitant]
     Active Substance: TAMSULOSIN HYDROCHLORIDE
  21. MOBIC [Concomitant]
     Active Substance: MELOXICAM
  22. CLARINEX [Concomitant]
     Active Substance: DESLORATADINE
  23. HYOSCYAMINE. [Concomitant]
     Active Substance: HYOSCYAMINE
  24. DOXAZOSIN [Concomitant]
     Active Substance: DOXAZOSIN MESYLATE
  25. NEXIUM [Suspect]
     Active Substance: ESOMEPRAZOLE MAGNESIUM
     Indication: GASTROOESOPHAGEAL REFLUX DISEASE
     Route: 048
     Dates: start: 199001
  26. PREVACID [Suspect]
     Active Substance: LANSOPRAZOLE
     Indication: GASTROOESOPHAGEAL REFLUX DISEASE
     Route: 065
     Dates: start: 199001
  27. PROTONIX [Suspect]
     Active Substance: PANTOPRAZOLE SODIUM
     Indication: GASTROOESOPHAGEAL REFLUX DISEASE
     Route: 065
     Dates: start: 199001
  28. TUMS [Concomitant]
     Active Substance: CALCIUM CARBONATE
     Dates: start: 1975, end: 1990
  29. SYMBICORT [Concomitant]
     Active Substance: BUDESONIDE\FORMOTEROL FUMARATE DIHYDRATE
  30. MAXIDONE [Concomitant]
     Active Substance: ACETAMINOPHEN\HYDROCODONE BITARTRATE
  31. SKELAXIN [Concomitant]
     Active Substance: METAXALONE
  32. NULYTELY [Concomitant]
     Active Substance: POLYETHYLENE GLYCOL 3350\POTASSIUM CHLORIDE\SODIUM BICARBONATE\SODIUM CHLORIDE
  33. BENICAR [Concomitant]
     Active Substance: OLMESARTAN MEDOXOMIL
  34. PRILOSEC [Suspect]
     Active Substance: OMEPRAZOLE MAGNESIUM
     Indication: GASTROOESOPHAGEAL REFLUX DISEASE
     Route: 048
     Dates: start: 199001
  35. BUSPIRONE [Concomitant]
     Active Substance: BUSPIRONE HYDROCHLORIDE
     Indication: ANXIETY
     Dates: start: 2018, end: 2020
  36. DONEPEZIL. [Concomitant]
     Active Substance: DONEPEZIL
     Indication: DEMENTIA ALZHEIMER^S TYPE
     Dates: start: 2018, end: 2020
  37. FERROUS SULFATE. [Concomitant]
     Active Substance: FERROUS SULFATE
     Indication: BLOOD IRON DECREASED
     Dates: start: 2018, end: 2020
  38. PRIMIDONE. [Concomitant]
     Active Substance: PRIMIDONE
  39. SERTRALINE [Concomitant]
     Active Substance: SERTRALINE HYDROCHLORIDE
  40. URSODIOL. [Concomitant]
     Active Substance: URSODIOL
  41. CEPHALEXIN. [Concomitant]
     Active Substance: CEPHALEXIN
  42. VIOXX [Concomitant]
     Active Substance: ROFECOXIB
  43. URISPAS [Concomitant]
     Active Substance: FLAVOXATE HYDROCHLORIDE
  44. ASPIRIN. [Concomitant]
     Active Substance: ASPIRIN
     Indication: BLOOD DISORDER
     Dates: start: 2009, end: 2020
  45. METOPROLOL TARTRATE. [Concomitant]
     Active Substance: METOPROLOL TARTRATE
     Indication: HYPERTENSION
     Dates: start: 2018, end: 2020
  46. ZANTAC [Concomitant]
     Active Substance: RANITIDINE HYDROCHLORIDE
     Dates: start: 1990, end: 2020
  47. BENZONATATE. [Concomitant]
     Active Substance: BENZONATATE
  48. VERAPAMIL [Concomitant]
     Active Substance: VERAPAMIL HYDROCHLORIDE
  49. STROMECTOL [Concomitant]
     Active Substance: IVERMECTIN
  50. NIFEREX [Concomitant]
  51. NEXIUM 24HR [Suspect]
     Active Substance: ESOMEPRAZOLE MAGNESIUM
     Indication: GASTROOESOPHAGEAL REFLUX DISEASE
     Route: 048
     Dates: start: 199001
  52. PROTONIX [Suspect]
     Active Substance: PANTOPRAZOLE SODIUM
     Indication: GASTROOESOPHAGEAL REFLUX DISEASE
     Dosage: GENERIC
     Route: 065
     Dates: start: 2013, end: 2017
  53. BUDESONIDE?FORMO [Concomitant]
     Indication: ASTHMA
     Dates: start: 2018, end: 2020
  54. CHOLECALCIFEROL [Concomitant]
     Active Substance: CHOLECALCIFEROL
     Indication: SUPPLEMENTATION THERAPY
     Dates: start: 2018, end: 2020
  55. LOSARTAN. [Concomitant]
     Active Substance: LOSARTAN
     Indication: HYPERTENSION
     Dates: start: 2017, end: 2020
  56. COLACE [Concomitant]
     Active Substance: DOCUSATE SODIUM
  57. TAMSULOSIN [Concomitant]
     Active Substance: TAMSULOSIN
  58. VITAMIN D3 [Concomitant]
     Active Substance: CHOLECALCIFEROL
  59. ANALPRAM [Concomitant]
  60. DOLOBID [Concomitant]
     Active Substance: DIFLUNISAL
  61. HISTINEX [Concomitant]
  62. NYSTATIN. [Concomitant]
     Active Substance: NYSTATIN
  63. CALCITRIOL. [Concomitant]
     Active Substance: CALCITRIOL
  64. PROTONIX [Suspect]
     Active Substance: PANTOPRAZOLE SODIUM
     Indication: GASTROOESOPHAGEAL REFLUX DISEASE
     Route: 065
     Dates: start: 2013, end: 2018
  65. ISOSORBIDE MONONITRATE. [Concomitant]
     Active Substance: ISOSORBIDE MONONITRATE
     Indication: CARDIAC FAILURE
     Dates: start: 2018, end: 2020
  66. AMLODIPINE [Concomitant]
     Active Substance: AMLODIPINE BESYLATE
  67. CELEBREX [Concomitant]
     Active Substance: CELECOXIB
  68. PEPCID [Concomitant]
     Active Substance: FAMOTIDINE
  69. ZYRTEC [Concomitant]
     Active Substance: CETIRIZINE HYDROCHLORIDE
  70. AVAPRO [Concomitant]
     Active Substance: IRBESARTAN
  71. ALLEGRA [Concomitant]
     Active Substance: FEXOFENADINE HYDROCHLORIDE
  72. LIPITOR [Concomitant]
     Active Substance: ATORVASTATIN CALCIUM

REACTIONS (5)
  - Renal failure [Unknown]
  - Hyperparathyroidism secondary [Unknown]
  - Nephrogenic anaemia [Unknown]
  - Chronic kidney disease [Not Recovered/Not Resolved]
  - Acute kidney injury [Not Recovered/Not Resolved]

NARRATIVE: CASE EVENT DATE: 2011
